FAERS Safety Report 9490646 (Version 1)
Quarter: 2013Q3

REPORT INFORMATION
  Report Type: Spontaneous
  Country: US (occurrence: None)
  Receive Date: 20130828
  Receipt Date: 20130828
  Transmission Date: 20140515
  Serious: Yes (Hospitalization)
  Sender: FDA-Public Use
  Company Number: None

PATIENT
  Age: 64 Year
  Sex: Female
  Weight: 64.41 kg

DRUGS (2)
  1. BENICAR [Suspect]
     Indication: HYPERTENSION
     Dosage: 1 PILL QD ORAL
     Route: 048
     Dates: end: 20130724
  2. CITALOPRAM [Concomitant]

REACTIONS (5)
  - Diarrhoea [None]
  - Weight decreased [None]
  - Coeliac disease [None]
  - Dehydration [None]
  - Renal failure acute [None]
